FAERS Safety Report 18242469 (Version 3)
Quarter: 2020Q4

REPORT INFORMATION
  Report Type: Report from Study
  Country: US (occurrence: US)
  Receive Date: 20200908
  Receipt Date: 20201110
  Transmission Date: 20210113
  Serious: Yes (Other)
  Sender: FDA-Public Use
  Company Number: US-PFIZER INC-2020185417

PATIENT
  Age: 62 Year
  Sex: Female

DRUGS (4)
  1. IBRANCE [Suspect]
     Active Substance: PALBOCICLIB
     Indication: BREAST CANCER FEMALE
     Dosage: 125 MG, CYCLIC (DAILY 21 DAYS ON, 7 DAYS OFF)
     Route: 048
     Dates: start: 20200413
  2. IBRANCE [Suspect]
     Active Substance: PALBOCICLIB
     Dosage: 100 MG, CYCLIC (TAKES FOR 21 DAYS ON, 7 OFF)
     Route: 048
     Dates: start: 20200804
  3. FASLODEX [Suspect]
     Active Substance: FULVESTRANT
     Dosage: UNK
     Dates: start: 20200429
  4. XGEVA [Concomitant]
     Active Substance: DENOSUMAB
     Dosage: UNK

REACTIONS (26)
  - Leukopenia [Recovering/Resolving]
  - Diarrhoea [Not Recovered/Not Resolved]
  - Weight increased [Unknown]
  - Hypersomnia [Unknown]
  - Cough [Not Recovered/Not Resolved]
  - Pneumonia streptococcal [Unknown]
  - Abdominal discomfort [Recovered/Resolved]
  - Device related thrombosis [Unknown]
  - Madarosis [Unknown]
  - Nasopharyngitis [Unknown]
  - Influenza like illness [Recovering/Resolving]
  - Depressed mood [Unknown]
  - Pyrexia [Recovering/Resolving]
  - Alopecia [Recovering/Resolving]
  - Fatigue [Recovering/Resolving]
  - Feeling abnormal [Unknown]
  - Bone lesion [Unknown]
  - Epistaxis [Recovered/Resolved]
  - Nausea [Unknown]
  - Throat irritation [Unknown]
  - Vitamin B12 decreased [Unknown]
  - Haematocrit decreased [Unknown]
  - Decreased appetite [Unknown]
  - Productive cough [Unknown]
  - Hallucination [Unknown]
  - Mean cell volume increased [Unknown]

NARRATIVE: CASE EVENT DATE: 2020
